FAERS Safety Report 12145865 (Version 1)
Quarter: 2016Q1

REPORT INFORMATION
  Report Type: Spontaneous
  Country: US (occurrence: US)
  Receive Date: 20160304
  Receipt Date: 20160304
  Transmission Date: 20160526
  Serious: No
  Sender: FDA-Public Use
  Company Number: US-009507513-1603USA002150

PATIENT
  Age: 30 Year
  Sex: Female

DRUGS (2)
  1. NEXPLANON [Suspect]
     Active Substance: ETONOGESTREL
     Dosage: 1 ROD EVERY 3 YEARS
     Route: 059
     Dates: start: 201210, end: 201510
  2. NEXPLANON [Suspect]
     Active Substance: ETONOGESTREL
     Indication: ENDOMETRIOSIS
     Dosage: 1 ROD EVERY 3 YEARS
     Route: 059
     Dates: start: 201510

REACTIONS (2)
  - Product use issue [Unknown]
  - Depression [Not Recovered/Not Resolved]

NARRATIVE: CASE EVENT DATE: 201210
